FAERS Safety Report 14750418 (Version 1)
Quarter: 2018Q2

REPORT INFORMATION
  Report Type: Spontaneous
  Country: US (occurrence: US)
  Receive Date: 20180412
  Receipt Date: 20180412
  Transmission Date: 20180711
  Serious: Yes (Other)
  Sender: FDA-Public Use
  Company Number: US-RICON PHARMA, LLC-RIC201803-000280

PATIENT
  Age: 62 Year
  Sex: Female
  Weight: 90.71 kg

DRUGS (11)
  1. ARMOUR THYROID [Concomitant]
     Active Substance: THYROID, PORCINE
  2. METHOTREXATE. [Concomitant]
     Active Substance: METHOTREXATE
  3. CLONIDINE. [Concomitant]
     Active Substance: CLONIDINE
  4. CLONIDINE. [Concomitant]
     Active Substance: CLONIDINE
     Indication: HYPERTENSION
  5. BUMETANIDE. [Concomitant]
     Active Substance: BUMETANIDE
     Indication: HYPERTENSION
  6. VERAPAMIL [Concomitant]
     Active Substance: VERAPAMIL HYDROCHLORIDE
     Indication: HYPERTENSION
  7. CHLORTHALIDONE 25 MG TABLETS [Suspect]
     Active Substance: CHLORTHALIDONE
     Indication: HYPERTENSION
     Dates: start: 20180128
  8. CLONIDINE. [Concomitant]
     Active Substance: CLONIDINE
  9. ADALAT [Concomitant]
     Active Substance: NIFEDIPINE
     Indication: HYPERTENSION
  10. BISPOROLOL [Concomitant]
     Indication: HYPERTENSION
  11. HYDRALAZINE [Concomitant]
     Active Substance: HYDRALAZINE HYDROCHLORIDE
     Indication: HYPERTENSION

REACTIONS (4)
  - Disorientation [Recovered/Resolved]
  - Anuria [Recovered/Resolved]
  - Drug ineffective [Recovered/Resolved]
  - Aphasia [Recovered/Resolved]
